FAERS Safety Report 13609146 (Version 2)
Quarter: 2017Q2

REPORT INFORMATION
  Report Type: Spontaneous
  Country: PL (occurrence: PL)
  Receive Date: 20170602
  Receipt Date: 20170612
  Transmission Date: 20170830
  Serious: Yes (Hospitalization)
  Sender: FDA-Public Use
  Company Number: PL-ABBVIE-17P-129-1992542-00

PATIENT
  Age: 65 Year
  Sex: Male

DRUGS (9)
  1. SPIRONOL [Interacting]
     Active Substance: SPIRONOLACTONE
     Indication: PRODUCT USED FOR UNKNOWN INDICATION
     Route: 048
     Dates: end: 201512
  2. SPIRONOL [Interacting]
     Active Substance: SPIRONOLACTONE
     Route: 048
     Dates: start: 201601
  3. VIEKIRAX [Suspect]
     Active Substance: OMBITASVIR\PARITAPREVIR\RITONAVIR
     Indication: CHRONIC HEPATITIS C
     Route: 048
     Dates: start: 20151211
  4. EXVIERA [Interacting]
     Active Substance: DASABUVIR
     Indication: CHRONIC HEPATITIS C
     Route: 048
     Dates: start: 20151211
  5. FUROSEMID [Interacting]
     Active Substance: FUROSEMIDE
     Route: 048
     Dates: start: 201601
  6. SPIRONOL [Interacting]
     Active Substance: SPIRONOLACTONE
     Route: 048
     Dates: start: 201512, end: 201601
  7. MODERIBA [Interacting]
     Active Substance: RIBAVIRIN
     Indication: CHRONIC HEPATITIS C
     Route: 048
     Dates: start: 20151211
  8. FUROSEMID [Interacting]
     Active Substance: FUROSEMIDE
     Indication: PRODUCT USED FOR UNKNOWN INDICATION
     Route: 048
     Dates: end: 201512
  9. FUROSEMID [Interacting]
     Active Substance: FUROSEMIDE
     Route: 048
     Dates: start: 201512, end: 201601

REACTIONS (11)
  - Yellow skin [Unknown]
  - Hepatic encephalopathy [Recovered/Resolved]
  - Drug interaction [Recovered/Resolved]
  - Urinary incontinence [Unknown]
  - Vomiting [Unknown]
  - Dehydration [Unknown]
  - Hyponatraemia [Recovered/Resolved]
  - Disorientation [Unknown]
  - Sluggishness [Unknown]
  - Somnolence [Unknown]
  - Middle insomnia [Unknown]
